FAERS Safety Report 7246797-7 (Version None)
Quarter: 2011Q1

REPORT INFORMATION
  Report Type: 
  Country: None (occurrence: None)
  Receive Date: 20110127
  Receipt Date: 20110120
  Transmission Date: 20110831
  Serious: Yes (Hospitalization)
  Sender: FDA-Public Use
  Company Number: FR-ASTELLAS-2011EU000340

PATIENT
  Sex: Male

DRUGS (1)
  1. VESICARE [Suspect]
     Indication: MICTURITION URGENCY
     Dosage: 1 DF, UNKNOWN/D
     Route: 048

REACTIONS (2)
  - ATONIC URINARY BLADDER [None]
  - URINARY RETENTION [None]
